FAERS Safety Report 4332411-7 (Version None)
Quarter: 2004Q2

REPORT INFORMATION
  Report Type: 
  Country: None (occurrence: None)
  Receive Date: 20040401
  Receipt Date: 20040317
  Transmission Date: 20050107
  Serious: Yes (Life-Threatening, Disabling)
  Sender: FDA-Public Use
  Company Number: 2004-03-0783

PATIENT
  Age: 39 Year
  Sex: Female
  Weight: 54 kg

DRUGS (9)
  1. REBETOL [Suspect]
     Indication: HEPATITIS C
     Dosage: 800 MG QD ORAL
     Route: 048
     Dates: start: 20030319, end: 20040216
  2. INTRON A [Suspect]
     Indication: HEPATITIS C
     Dosage: 6 MIU QD INTRAMUSCULAR; 6 MIU TIW INTRAMUSCULAR; 3 MIU TIW INTRAMUSCULAR
     Route: 030
     Dates: start: 20030319, end: 20030402
  3. INTRON A [Suspect]
     Indication: HEPATITIS C
     Dosage: 6 MIU QD INTRAMUSCULAR; 6 MIU TIW INTRAMUSCULAR; 3 MIU TIW INTRAMUSCULAR
     Route: 030
     Dates: start: 20030404, end: 20030901
  4. INTRON A [Suspect]
     Indication: HEPATITIS C
     Dosage: 6 MIU QD INTRAMUSCULAR; 6 MIU TIW INTRAMUSCULAR; 3 MIU TIW INTRAMUSCULAR
     Route: 030
     Dates: start: 20031013, end: 20040216
  5. INTERFERON ALFACON-1 INJECTABLE [Suspect]
     Indication: HEPATITIS C
     Dosage: 12 MIU INTRAMUSCULAR
     Route: 030
     Dates: start: 20030903, end: 20031010
  6. MEDICON [Concomitant]
  7. PROMAC (POLAPREZINC) [Concomitant]
  8. SELBEX [Concomitant]
  9. DASEN [Concomitant]

REACTIONS (7)
  - ANOREXIA [None]
  - DIABETES MELLITUS INSULIN-DEPENDENT [None]
  - DIABETIC KETOACIDOSIS [None]
  - MALAISE [None]
  - NASOPHARYNGITIS [None]
  - VOMITING [None]
  - WEIGHT DECREASED [None]
